FAERS Safety Report 7235558-0 (Version None)
Quarter: 2011Q1

REPORT INFORMATION
  Report Type: 
  Country: None (occurrence: None)
  Receive Date: 20110120
  Receipt Date: 20110112
  Transmission Date: 20110831
  Serious: Yes (Other)
  Sender: FDA-Public Use
  Company Number: PHHY2010FR87523

PATIENT
  Sex: Female

DRUGS (4)
  1. EXELON [Suspect]
     Indication: DEMENTIA ALZHEIMER'S TYPE
     Dosage: 4.6 MG, QD
     Route: 062
  2. PAROXETINE [Concomitant]
     Dosage: 1 DF, UNK
  3. EXELON [Suspect]
     Dosage: 9.5 MG, QD
     Route: 062
     Dates: start: 20101026
  4. EQUANIL [Concomitant]
     Dosage: 1 DF, UNK

REACTIONS (2)
  - APPLICATION SITE PRURITUS [None]
  - APPLICATION SITE DISCOLOURATION [None]
